FAERS Safety Report 21608543 (Version 1)
Quarter: 2022Q4

REPORT INFORMATION
  Report Type: Spontaneous
  Country: US (occurrence: None)
  Receive Date: 20221116
  Receipt Date: 20221116
  Transmission Date: 20230113
  Serious: Yes (Disabling)
  Sender: FDA-Public Use
  Company Number: None

PATIENT
  Age: 86 Year
  Sex: Male
  Weight: 75.6 kg

DRUGS (10)
  1. PROLIA [Suspect]
     Active Substance: DENOSUMAB
     Indication: Osteoporosis
     Dosage: OTHER FREQUENCY : EVERY SIX MONTHS;?OTHER ROUTE : INJECTION;?
     Route: 050
     Dates: start: 20211028
  2. SODIUM BICARBONATE [Concomitant]
     Active Substance: SODIUM BICARBONATE
  3. TERAZOSIN [Concomitant]
     Active Substance: TERAZOSIN HYDROCHLORIDE
  4. DUTASTERIDE [Concomitant]
     Active Substance: DUTASTERIDE
  5. RAYALDEE [Concomitant]
     Active Substance: CALCIFEDIOL
  6. TORSEMIDE [Concomitant]
     Active Substance: TORSEMIDE
  7. METOPROPOL SUCCINATE [Concomitant]
  8. VITAMIN  B12 [Concomitant]
  9. CRANBERRY [Concomitant]
     Active Substance: CRANBERRY
  10. VITAMIN C [Concomitant]
     Active Substance: ASCORBIC ACID

REACTIONS (3)
  - Arthralgia [None]
  - Pain in extremity [None]
  - Pain in extremity [None]

NARRATIVE: CASE EVENT DATE: 20220715
